FAERS Safety Report 9225085 (Version 4)
Quarter: 2013Q4

REPORT INFORMATION
  Report Type: Spontaneous
  Country: DK (occurrence: DK)
  Receive Date: 20130411
  Receipt Date: 20131001
  Transmission Date: 20140711
  Serious: Yes (Other)
  Sender: FDA-Public Use
  Company Number: DK-ASTRAZENECA-2013SE22115

PATIENT
  Age: 46 Year
  Sex: Female

DRUGS (4)
  1. SEROQUEL [Suspect]
     Indication: BIPOLAR DISORDER
     Route: 048
     Dates: start: 20100614
  2. LYRICA [Suspect]
     Indication: BIPOLAR DISORDER
     Route: 048
     Dates: start: 20110310
  3. LAMICTAL [Suspect]
     Indication: BIPOLAR DISORDER
     Dosage: 250 MG AT NIGHT, 200 MG AND 50 MG STRENGTH
     Route: 048
     Dates: start: 20100407
  4. LITAREX [Suspect]
     Indication: BIPOLAR DISORDER
     Route: 048
     Dates: start: 20120304

REACTIONS (5)
  - Polyneuropathy [Recovering/Resolving]
  - Paraesthesia [Recovering/Resolving]
  - Pain in extremity [Recovering/Resolving]
  - Skin burning sensation [Recovering/Resolving]
  - Sleep disorder [Not Recovered/Not Resolved]
